FAERS Safety Report 5154959-8 (Version None)
Quarter: 2006Q4

REPORT INFORMATION
  Report Type: 
  Country: None (occurrence: None)
  Receive Date: 20061121
  Receipt Date: 20061115
  Transmission Date: 20070319
  Serious: Yes (Other)
  Sender: FDA-Public Use
  Company Number: US-SOLVAY-00206003718

PATIENT
  Age: 73 Year
  Sex: Male
  Weight: 77 kg

DRUGS (3)
  1. BUPROPION HYDROCHLORIDE [Concomitant]
     Indication: DEPRESSION
     Dosage: DAILY DOSE:  UNKNOWN
     Route: 048
  2. ANDROGEL [Suspect]
     Indication: ERECTILE DYSFUNCTION
     Dosage: DAILY DOSE: 5 GRAM(S)
     Route: 062
     Dates: start: 20050501
  3. BUSPIRONE HCL [Concomitant]
     Indication: ANXIETY
     Dosage: DAILY DOSE:  UNKNOWN
     Route: 048

REACTIONS (3)
  - CARDIAC FAILURE [None]
  - DRUG EFFECT DECREASED [None]
  - MYOCARDIAL INFARCTION [None]
